FAERS Safety Report 5886231-2 (Version None)
Quarter: 2008Q3

REPORT INFORMATION
  Report Type: 
  Country: None (occurrence: None)
  Receive Date: 20080917
  Receipt Date: 20080905
  Transmission Date: 20090109
  Serious: Yes (Life-Threatening, Hospitalization)
  Sender: FDA-Public Use
  Company Number: FR-ELI_LILLY_AND_COMPANY-FR200809001083

PATIENT
  Sex: Male

DRUGS (3)
  1. GEMZAR [Suspect]
     Indication: BLADDER CANCER
     Dosage: 2.2 G, UNKNOWN
     Route: 042
     Dates: start: 20080528, end: 20080528
  2. CARBOPLATIN [Concomitant]
     Indication: BLADDER CANCER
     Dosage: 30 MG, UNKNOWN
     Route: 042
     Dates: start: 20080528, end: 20080528
  3. SOLU-MEDROL [Concomitant]
     Indication: BLADDER CANCER
     Dosage: 120 MG, UNKNOWN
     Route: 065
     Dates: start: 20080528, end: 20080528

REACTIONS (13)
  - AGITATION [None]
  - ANAEMIA [None]
  - CARDIO-RESPIRATORY ARREST [None]
  - CONFUSIONAL STATE [None]
  - CORONARY ARTERY STENOSIS [None]
  - EJECTION FRACTION DECREASED [None]
  - HYPOTENSION [None]
  - MYOCARDIAL INFARCTION [None]
  - PULMONARY OEDEMA [None]
  - RENAL FAILURE [None]
  - SINOATRIAL BLOCK [None]
  - TACHYCARDIA [None]
  - VENTRICULAR FIBRILLATION [None]
